FAERS Safety Report 9650478 (Version 8)
Quarter: 2022Q4

REPORT INFORMATION
  Report Type: Other
  Country: CA (occurrence: None)
  Receive Date: 20131029
  Receipt Date: 20221130
  Transmission Date: 20230112
  Serious: Yes (Other)
  Sender: FDA-Public Use
  Company Number: CA-ROCHE-1172626

PATIENT
  Age: 68 Year
  Sex: Female
  Weight: 53 kg

DRUGS (14)
  1. ACTEMRA [Suspect]
     Active Substance: TOCILIZUMAB
     Indication: Rheumatoid arthritis
     Route: 042
     Dates: start: 20121120
  2. ACTEMRA [Suspect]
     Active Substance: TOCILIZUMAB
     Route: 042
     Dates: start: 20121218
  3. ACTEMRA [Suspect]
     Active Substance: TOCILIZUMAB
     Route: 042
     Dates: start: 20131022
  4. ACTEMRA [Suspect]
     Active Substance: TOCILIZUMAB
     Route: 042
     Dates: start: 20131119
  5. ACTEMRA [Suspect]
     Active Substance: TOCILIZUMAB
     Route: 042
     Dates: start: 20141204, end: 20150312
  6. ACTEMRA [Suspect]
     Active Substance: TOCILIZUMAB
     Dosage: EXPIRY DATE: 31/JUL/2024
     Route: 042
     Dates: end: 20150507
  7. ARAVA [Concomitant]
     Active Substance: LEFLUNOMIDE
  8. GLYBURIDE [Concomitant]
     Active Substance: GLYBURIDE
  9. ACTONEL [Concomitant]
     Active Substance: RISEDRONATE SODIUM
  10. IBUPROFEN [Concomitant]
     Active Substance: IBUPROFEN
  11. FOLIC ACID [Concomitant]
     Active Substance: FOLIC ACID
  12. ASPIRIN [Concomitant]
     Active Substance: ASPIRIN
  13. RABEPRAZOLE [Concomitant]
     Active Substance: RABEPRAZOLE
  14. PREDNISONE [Concomitant]
     Active Substance: PREDNISONE

REACTIONS (14)
  - Infusion related reaction [Recovered/Resolved]
  - Blood pressure increased [Recovering/Resolving]
  - Asthma [Recovering/Resolving]
  - Laryngitis [Recovered/Resolved]
  - Incorrect route of product administration [Unknown]
  - Contusion [Not Recovered/Not Resolved]
  - Poor venous access [Unknown]
  - Urinary tract infection [Not Recovered/Not Resolved]
  - Weight decreased [Unknown]
  - Weight increased [Not Recovered/Not Resolved]
  - Infusion related reaction [Unknown]
  - Musculoskeletal stiffness [Not Recovered/Not Resolved]
  - Blood pressure systolic increased [Unknown]
  - Oxygen saturation decreased [Unknown]

NARRATIVE: CASE EVENT DATE: 20121218
